FAERS Safety Report 6561455-X (Version None)
Quarter: 2010Q1

REPORT INFORMATION
  Report Type: 
  Country: None (occurrence: None)
  Receive Date: 20100130
  Receipt Date: 20091016
  Transmission Date: 20100710
  Serious: No
  Sender: FDA-Public Use
  Company Number: US-ABBOTT-09P-163-0603162-00

PATIENT
  Sex: Female
  Weight: 136.2 kg

DRUGS (2)
  1. HUMIRA [Suspect]
     Indication: ANKYLOSING SPONDYLITIS
     Dates: start: 20090401
  2. HUMIRA [Suspect]
     Dates: start: 20081001, end: 20090401

REACTIONS (4)
  - CHILLS [None]
  - INFLUENZA LIKE ILLNESS [None]
  - PAIN [None]
  - RESPIRATORY TRACT CONGESTION [None]
